FAERS Safety Report 7264926-6 (Version None)
Quarter: 2011Q1

REPORT INFORMATION
  Report Type: 
  Country: None (occurrence: None)
  Receive Date: 20110131
  Receipt Date: 20101123
  Transmission Date: 20110831
  Serious: Yes (Hospitalization, Other)
  Sender: FDA-Public Use
  Company Number: US-BAYER-201038179NA

PATIENT
  Sex: Female
  Weight: 55.782 kg

DRUGS (9)
  1. COUMADIN [Concomitant]
     Dosage: 6 MG, QD
     Dates: end: 20061120
  2. LOVENOX [Concomitant]
  3. ASA [Concomitant]
     Dosage: 325 MG, QD
     Dates: start: 20061120
  4. COUMADIN [Concomitant]
     Dosage: 8 MG, QD
     Dates: end: 20061120
  5. YASMIN [Suspect]
     Indication: CONTRACEPTION
     Dosage: UNK
     Dates: start: 20010101, end: 20060101
  6. LEXAPRO [Concomitant]
     Dosage: 10 MG, UNK
     Route: 048
     Dates: start: 20060403, end: 20061004
  7. YAZ [Suspect]
  8. DILAUDID [Concomitant]
     Indication: PAIN
     Dosage: UNK
     Dates: start: 20060508
  9. ORTHO TRI-CYCLEN [Concomitant]
     Dosage: UNK
     Dates: start: 20010701, end: 20020310

REACTIONS (5)
  - PAIN [None]
  - CHEST PAIN [None]
  - PULMONARY EMBOLISM [None]
  - SYNCOPE [None]
  - DYSPNOEA [None]
